FAERS Safety Report 9975925 (Version 10)
Quarter: 2015Q1

REPORT INFORMATION
  Report Type: Spontaneous
  Country: US (occurrence: US)
  Receive Date: 20140306
  Receipt Date: 20150313
  Transmission Date: 20150721
  Serious: Yes (Hospitalization, Other)
  Sender: FDA-Public Use
  Company Number: US-PFIZER INC-2014060958

PATIENT
  Age: 62 Year
  Sex: Female
  Weight: 72.56 kg

DRUGS (9)
  1. SUTENT [Suspect]
     Active Substance: SUNITINIB MALATE
     Indication: RENAL CANCER
     Dosage: 37.5 MG DAILY, 4 WEEKS ON AND 2 WEEKS OFF
     Dates: start: 20140223
  2. XANAX [Concomitant]
     Active Substance: ALPRAZOLAM
     Dosage: UNK
     Dates: start: 201112
  3. SUTENT [Suspect]
     Active Substance: SUNITINIB MALATE
     Dosage: 37 MG, 1X/DAY
     Dates: start: 201402, end: 20140929
  4. VITAMIN C [Concomitant]
     Active Substance: ASCORBIC ACID
     Dosage: UNK
  5. ASPIRIN. [Concomitant]
     Active Substance: ASPIRIN
     Dosage: 81 MG, UNK
  6. METOPROLOL [Concomitant]
     Active Substance: METOPROLOL
     Dosage: UNK
     Dates: start: 201410
  7. SUTENT [Suspect]
     Active Substance: SUNITINIB MALATE
     Dosage: 37.5 MG DAILY, 4 WEEKS ON AND 2 WEEKS OFF
  8. TUMS [Concomitant]
     Active Substance: CALCIUM CARBONATE
     Dosage: UNK
     Dates: end: 201402
  9. PHENERGAN [Concomitant]
     Active Substance: PROMETHAZINE HYDROCHLORIDE
     Dosage: UNK, AS NEEDED
     Dates: start: 201409

REACTIONS (26)
  - Malignant hypertension [Unknown]
  - Pain in extremity [Recovered/Resolved]
  - Pelvic pain [Recovered/Resolved]
  - Liver function test abnormal [Unknown]
  - Nausea [Not Recovered/Not Resolved]
  - Second primary malignancy [Unknown]
  - Palmar-plantar erythrodysaesthesia syndrome [Not Recovered/Not Resolved]
  - Dyspepsia [Not Recovered/Not Resolved]
  - Glossodynia [Recovered/Resolved]
  - Fatigue [Not Recovered/Not Resolved]
  - Hyperkeratosis [Not Recovered/Not Resolved]
  - Flank pain [Unknown]
  - Decreased appetite [Recovered/Resolved]
  - Vomiting [Recovered/Resolved]
  - Stomatitis [Recovered/Resolved]
  - Thyroid cancer [Unknown]
  - Skin exfoliation [Unknown]
  - Hypertension [Recovered/Resolved]
  - Headache [Unknown]
  - White blood cell count decreased [Unknown]
  - Dehydration [Recovered/Resolved]
  - Oropharyngeal pain [Unknown]
  - Burning sensation [Recovered/Resolved]
  - Paraesthesia oral [Unknown]
  - Blister [Not Recovered/Not Resolved]
  - Renal function test abnormal [Not Recovered/Not Resolved]

NARRATIVE: CASE EVENT DATE: 2014
